FAERS Safety Report 20302326 (Version 5)
Quarter: 2022Q2

REPORT INFORMATION
  Report Type: Report from Study
  Country: BR (occurrence: BR)
  Receive Date: 20220106
  Receipt Date: 20220505
  Transmission Date: 20220720
  Serious: Yes (Death, Hospitalization, Other)
  Sender: FDA-Public Use
  Company Number: BR-BoehringerIngelheim-2022-BI-146725

PATIENT
  Age: 59 Year
  Sex: Female
  Weight: 80 kg

DRUGS (11)
  1. OFEV [Suspect]
     Active Substance: NINTEDANIB
     Indication: Idiopathic pulmonary fibrosis
     Route: 048
     Dates: start: 202108, end: 20211231
  2. OFEV [Suspect]
     Active Substance: NINTEDANIB
     Indication: Lung neoplasm malignant
  3. PURAN [Concomitant]
     Active Substance: LEVOTHYROXINE SODIUM
     Indication: Hypothyroidism
  4. BISOPROLOL FUMARATE [Concomitant]
     Active Substance: BISOPROLOL FUMARATE
     Indication: Tachycardia
  5. IVABRADINE [Concomitant]
     Active Substance: IVABRADINE
     Indication: Tachycardia
  6. ESCITALOPRAN [Concomitant]
     Indication: Depression
  7. GABAPENTIN [Concomitant]
     Active Substance: GABAPENTIN
     Indication: Neuralgia
  8. TIZANIDINE [Concomitant]
     Active Substance: TIZANIDINE
     Indication: Pain
  9. OLODATEROL HYDROCHLORIDE\TIOTROPIUM BROMIDE MONOHYDRATE [Concomitant]
     Active Substance: OLODATEROL HYDROCHLORIDE\TIOTROPIUM BROMIDE MONOHYDRATE
     Indication: Chronic obstructive pulmonary disease
  10. CYCLOBENZAPRINE [Concomitant]
     Active Substance: CYCLOBENZAPRINE
     Indication: Myalgia
  11. litocit [Concomitant]
     Indication: Nephrectomy

REACTIONS (7)
  - Respiratory failure [Fatal]
  - Hypoxia [Fatal]
  - Pulmonary embolism [Recovered/Resolved]
  - Respiratory disorder [Recovered/Resolved]
  - Oxygen saturation decreased [Recovered/Resolved]
  - Idiopathic pulmonary fibrosis [Not Recovered/Not Resolved]
  - Off label use [Unknown]

NARRATIVE: CASE EVENT DATE: 20211031
